FAERS Safety Report 8001983-3 (Version None)
Quarter: 2011Q4

REPORT INFORMATION
  Report Type: 
  Country: None (occurrence: None)
  Receive Date: 20111220
  Receipt Date: 20111205
  Transmission Date: 20120403
  Serious: Yes (Hospitalization)
  Sender: FDA-Public Use
  Company Number: 2011SGN00312

PATIENT
  Age: 81 Year
  Sex: Male
  Weight: 92.4 kg

DRUGS (26)
  1. PREDNISONE TAB [Suspect]
     Indication: ANAPLASTIC LARGE CELL LYMPHOMA T- AND NULL-CELL TYPES
     Dosage: 100 MG, Q21D, ORAL
     Route: 048
     Dates: start: 20111102, end: 20111106
  2. DOCUSATE (DOCUSATE) [Concomitant]
  3. BENZONATATE [Concomitant]
  4. POTASSIUM CHLORIDE [Concomitant]
  5. TRAVATAN [Concomitant]
  6. VINCRISTINE [Suspect]
     Indication: ANAPLASTIC LARGE CELL LYMPHOMA T- AND NULL-CELL TYPES
     Dosage: 1.4 MG/M2, Q21D, INTRAVENOUS
     Route: 042
     Dates: start: 20111102, end: 20111102
  7. PANTOPRAZOLE [Concomitant]
  8. METAMUCIL-2 [Concomitant]
  9. CALMOSEPTINE (CALAMINE) [Concomitant]
  10. CYCLOPHOSPHAMIDE [Suspect]
     Indication: ANAPLASTIC LARGE CELL LYMPHOMA T- AND NULL-CELL TYPES
     Dosage: 750MG/M2, Q21D, INTRAVENOUS
     Route: 042
     Dates: start: 20111102, end: 20111102
  11. ACETAMINOPHEN [Concomitant]
  12. HYDROXYZINE (HYDROXYXINE HYDROCHLORIDE) [Concomitant]
  13. FUROSEMIDE [Concomitant]
  14. FLUCONAZOLE [Concomitant]
  15. NEXIUM [Concomitant]
  16. NOVOLOG [Concomitant]
  17. ALBUTEROL [Concomitant]
  18. HYDROCORTISONE [Concomitant]
  19. ATIVAN [Concomitant]
  20. BRENTUXIMAB VEDOTIN (BRENTUXIMAB VEDOTIN) INJECTION [Suspect]
     Indication: ANAPLASTIC LARGE CELL LYMPHOMA T- AND NULL-CELL TYPES
     Dosage: 1.8 MG/KG, Q21D, INTRAVENOUS
     Route: 042
     Dates: start: 20110919, end: 20111012
  21. DOXORUBICIN HCL [Suspect]
     Indication: ANAPLASTIC LARGE CELL LYMPHOMA T- AND NULL-CELL TYPES
     Dosage: 50 MG/M2, Q21D, INTRAVENOUS
     Route: 042
     Dates: start: 20111102, end: 20111102
  22. DIPHENHYDRAMINE (DIPEHNHYDRAMINE) [Concomitant]
  23. PROCHLORPERAZINE (PROCHLORPREAZINE MALEATE) [Concomitant]
  24. BACLOFEN [Concomitant]
  25. METOCLOPRAMIDE (METOCLORPAMIDE HYDROCHLORIDE) [Concomitant]
  26. VALACICLOVIR (VALACICLOVIR HYDROCHLORIDE) [Concomitant]

REACTIONS (7)
  - URINARY TRACT INFECTION [None]
  - ENTEROCOCCAL INFECTION [None]
  - ESCHERICHIA INFECTION [None]
  - BACTERAEMIA [None]
  - GOUT [None]
  - PLATELET COUNT DECREASED [None]
  - CONDITION AGGRAVATED [None]
